FAERS Safety Report 4994342-9 (Version None)
Quarter: 2006Q2

REPORT INFORMATION
  Report Type: 
  Country: None (occurrence: None)
  Receive Date: 20060503
  Receipt Date: 20060420
  Transmission Date: 20061013
  Serious: Yes (Other)
  Sender: FDA-Public Use
  Company Number: JP200604002832

PATIENT
  Age: 65 Year
  Sex: Male

DRUGS (3)
  1. GEMZAR [Suspect]
     Indication: BILE DUCT CANCER
     Dosage: 1200 MG, OTHER, INTRAVENOUS
     Route: 042
     Dates: start: 20060414
  2. KYTRIL (GRANISETRON) GRAIN [Concomitant]
  3. DECADRON SRC [Concomitant]

REACTIONS (1)
  - PANCREATITIS ACUTE [None]
